FAERS Safety Report 6076703-2 (Version None)
Quarter: 2009Q1

REPORT INFORMATION
  Report Type: 
  Country: None (occurrence: None)
  Receive Date: 20090213
  Receipt Date: 20090210
  Transmission Date: 20090719
  Serious: Yes (Life-Threatening, Hospitalization, Other)
  Sender: FDA-Public Use
  Company Number: PHEH2009US01603

PATIENT
  Age: 70 Year
  Sex: Female

DRUGS (9)
  1. FEMARA [Suspect]
  2. CAPECITABINE [Suspect]
     Indication: BREAST CANCER METASTATIC
  3. LAPATINIB [Suspect]
     Indication: BREAST CANCER METASTATIC
  4. TRASTUZUMAB [Suspect]
  5. ATENOLOL [Concomitant]
  6. VITAMINS [Concomitant]
  7. POTASSIUM CHLORIDE [Concomitant]
  8. MULTI-VITAMINS [Concomitant]
  9. VITAMIN D [Concomitant]

REACTIONS (9)
  - CARDIAC ARREST [None]
  - CATHETER RELATED COMPLICATION [None]
  - DIARRHOEA [None]
  - DRUG INEFFECTIVE [None]
  - INFECTION [None]
  - MALAISE [None]
  - RASH [None]
  - STOMATITIS [None]
  - THERAPEUTIC AGENT TOXICITY [None]
